FAERS Safety Report 6335503-6 (Version None)
Quarter: 2009Q3

REPORT INFORMATION
  Report Type: 
  Country: None (occurrence: None)
  Receive Date: 20090831
  Receipt Date: 20090821
  Transmission Date: 20100115
  Serious: Yes (Other)
  Sender: FDA-Public Use
  Company Number: US-PFIZER INC-2009234992

PATIENT
  Sex: Male
  Weight: 90.718 kg

DRUGS (19)
  1. CELEBREX [Suspect]
     Dosage: 200 MG, 1X/DAY
     Dates: start: 20090401, end: 20090601
  2. GABAPENTIN [Concomitant]
  3. PREGABALIN [Concomitant]
  4. METHOCARBAMOL [Concomitant]
  5. FINASTERIDE [Concomitant]
  6. METOPROLOL TARTRATE [Concomitant]
  7. GLIMEPIRIDE [Concomitant]
  8. TERAZOSIN HYDROCHLORIDE [Concomitant]
  9. HYDROCHLOROTHIAZIDE [Concomitant]
  10. VALSARTAN [Concomitant]
  11. PLAVIX [Concomitant]
  12. XANAX [Concomitant]
  13. NABUMETONE [Concomitant]
  14. GLUCOSAMINE [Concomitant]
  15. CENTRUM SILVER [Concomitant]
  16. VITAMIN D [Concomitant]
  17. OMEPRAZOLE [Concomitant]
  18. SALSALATE [Concomitant]
  19. FISH OIL [Concomitant]

REACTIONS (2)
  - CONSTIPATION [None]
  - GAIT DISTURBANCE [None]
